FAERS Safety Report 14898103 (Version 1)
Quarter: 2018Q2

REPORT INFORMATION
  Report Type: Spontaneous
  Country: RO (occurrence: RO)
  Receive Date: 20180515
  Receipt Date: 20180515
  Transmission Date: 20180711
  Serious: Yes (Other)
  Sender: FDA-Public Use
  Company Number: RO-MYLANLABS-2018M1031371

PATIENT
  Age: 62 Year
  Sex: Female

DRUGS (6)
  1. OXALIPLATIN. [Suspect]
     Active Substance: OXALIPLATIN
     Dosage: 85 MG/M2, Q3W,FREQUENCY: EVERY 3 WEEKS
     Route: 042
  2. IRINOTECAN                         /01280202/ [Suspect]
     Active Substance: IRINOTECAN
     Indication: METASTASES TO LUNG
     Dosage: CYUNK
     Route: 042
     Dates: start: 201604, end: 201804
  3. OXALIPLATIN. [Suspect]
     Active Substance: OXALIPLATIN
     Indication: METASTASES TO LUNG
     Dosage: UNK UNK, CYCLE
     Route: 042
     Dates: start: 201604, end: 201804
  4. IRINOTECAN                         /01280202/ [Suspect]
     Active Substance: IRINOTECAN
     Indication: RECTAL ADENOCARCINOMA
     Dosage: 200 MG/M2, Q3W,FREQUENCY: EVERY 3 WEEKS
     Route: 042
  5. IRINOTECAN                         /01280202/ [Suspect]
     Active Substance: IRINOTECAN
     Dosage: 180 MG/M2, Q2W,EVERY 2 WEEKS
     Route: 042
  6. OXALIPLATIN. [Suspect]
     Active Substance: OXALIPLATIN
     Indication: RECTAL ADENOCARCINOMA
     Dosage: 85 MG/M2, Q3W,AT EVERY 2 WEEKS
     Route: 042
     Dates: start: 201110

REACTIONS (5)
  - Neutropenia [Unknown]
  - Leukopenia [Unknown]
  - Dysphagia [Unknown]
  - Peripheral sensory neuropathy [Unknown]
  - Diarrhoea [Unknown]
